FAERS Safety Report 4928761-3 (Version None)
Quarter: 2006Q1

REPORT INFORMATION
  Report Type: 
  Country: None (occurrence: None)
  Receive Date: 20060301
  Receipt Date: 20060217
  Transmission Date: 20060701
  Serious: Yes (Hospitalization)
  Sender: FDA-Public Use
  Company Number: BR-JNJFOC-20060204551

PATIENT
  Age: 22 Year
  Sex: Female
  Weight: 52 kg

DRUGS (3)
  1. NIZORAL [Suspect]
     Indication: DRUG USE FOR UNKNOWN INDICATION
  2. TRIQUILAR [Concomitant]
  3. TRIQUILAR [Concomitant]
     Indication: CONTRACEPTION

REACTIONS (4)
  - APPENDICECTOMY [None]
  - DIZZINESS [None]
  - MALAISE [None]
  - NAUSEA [None]
